FAERS Safety Report 5212213-X (Version None)
Quarter: 2006Q4

REPORT INFORMATION
  Report Type: 
  Country: None (occurrence: None)
  Receive Date: 20061115
  Receipt Date: 20060808
  Transmission Date: 20070319
  Serious: No
  Sender: FDA-Public Use
  Company Number: 200614321BWH

PATIENT
  Age: 54 Year
  Sex: Male

DRUGS (10)
  1. NEXAVAR [Suspect]
     Indication: HEPATIC NEOPLASM MALIGNANT
     Dosage: 400 MG, BID, ORAL
     Route: 048
     Dates: start: 20060609, end: 20060626
  2. LACTULOSE [Concomitant]
  3. IMIPRAMINE [Concomitant]
  4. PANGESTYME [Concomitant]
  5. GLYBURIDE [Concomitant]
  6. NEURONTIN [Concomitant]
  7. TEMAZEPAM [Concomitant]
  8. PROPOXYPHENE HYDROCHLORIDE [Concomitant]
  9. RAPTIVA [Concomitant]
  10. TYLENOL [Concomitant]

REACTIONS (5)
  - ABDOMINAL PAIN [None]
  - ABDOMINAL PAIN LOWER [None]
  - CONSTIPATION [None]
  - DECREASED APPETITE [None]
  - FLATULENCE [None]
